FAERS Safety Report 4386248-3 (Version None)
Quarter: 2004Q2

REPORT INFORMATION
  Report Type: 
  Country: None (occurrence: None)
  Receive Date: 20040628
  Receipt Date: 20040628
  Transmission Date: 20050107
  Serious: Yes (Other)
  Sender: FDA-Public Use
  Company Number: None

PATIENT
  Sex: Male
  Weight: 79.3795 kg

DRUGS (1)
  1. VANCOMYCIN [Suspect]
     Indication: OSTEOMYELITIS
     Dosage: 1 GM Q 24 HR
     Dates: start: 20040529, end: 20040615

REACTIONS (3)
  - ANAEMIA [None]
  - FLUID INTAKE REDUCED [None]
  - HYPOTENSION [None]
